FAERS Safety Report 21713549 (Version 2)
Quarter: 2022Q4

REPORT INFORMATION
  Report Type: Spontaneous
  Country: US (occurrence: US)
  Receive Date: 20221212
  Receipt Date: 20221220
  Transmission Date: 20230113
  Serious: No
  Sender: FDA-Public Use
  Company Number: US-JNJFOC-20221164092

PATIENT
  Age: 60 Year
  Sex: Female

DRUGS (6)
  1. REMICADE [Suspect]
     Active Substance: INFLIXIMAB
     Indication: Crohn^s disease
     Route: 041
     Dates: start: 202208
  2. REMICADE [Suspect]
     Active Substance: INFLIXIMAB
     Indication: Ankylosing spondylitis
  3. TORADOL [Concomitant]
     Active Substance: KETOROLAC TROMETHAMINE
  4. ULTRAM [Concomitant]
     Active Substance: TRAMADOL HYDROCHLORIDE
     Indication: Pain
  5. LIDOCAINE [Concomitant]
     Active Substance: LIDOCAINE
  6. BENADRYL [Concomitant]
     Active Substance: DIPHENHYDRAMINE HYDROCHLORIDE

REACTIONS (21)
  - Malaise [Unknown]
  - Nausea [Unknown]
  - Feeling cold [Unknown]
  - Pain [Unknown]
  - Decreased appetite [Unknown]
  - Headache [Unknown]
  - Peripheral swelling [Recovered/Resolved]
  - Arthropathy [Unknown]
  - Inflammation [Unknown]
  - Diarrhoea [Unknown]
  - Movement disorder [Unknown]
  - Arthralgia [Unknown]
  - Bursitis [Unknown]
  - Incorrect dose administered [Unknown]
  - Chills [Unknown]
  - Contusion [Unknown]
  - Therapeutic product effect decreased [Unknown]
  - Feeling abnormal [Unknown]
  - General physical health deterioration [Unknown]
  - Chest pain [Unknown]
  - Pain [Unknown]
